FAERS Safety Report 10773473 (Version 1)
Quarter: 2015Q1

REPORT INFORMATION
  Report Type: Spontaneous
  Country: US (occurrence: US)
  Receive Date: 20150208
  Receipt Date: 20150208
  Transmission Date: 20150721
  Serious: No
  Sender: FDA-Public Use
  Company Number: US-ACORDA-ACO_107355_2014

PATIENT
  Age: 41 Year
  Sex: Female

DRUGS (3)
  1. COPAXONE [Concomitant]
     Active Substance: GLATIRAMER ACETATE
     Dosage: 40 MG, THREE TIMES A WEEK
     Route: 065
  2. DIMETHYL FUMARATE [Suspect]
     Active Substance: DIMETHYL FUMARATE
     Dosage: 240 MG, BID
     Route: 048
     Dates: start: 20140526, end: 20141001
  3. AMPYRA [Suspect]
     Active Substance: DALFAMPRIDINE
     Indication: PRODUCT USED FOR UNKNOWN INDICATION
     Dosage: UNK
     Route: 065
     Dates: end: 201410

REACTIONS (3)
  - Activities of daily living impaired [Unknown]
  - Multiple sclerosis [Unknown]
  - Tremor [Unknown]

NARRATIVE: CASE EVENT DATE: 20141001
